FAERS Safety Report 19356746 (Version 2)
Quarter: 2021Q3

REPORT INFORMATION
  Report Type: Report from Study
  Country: US (occurrence: US)
  Receive Date: 20210602
  Receipt Date: 20210809
  Transmission Date: 20211014
  Serious: No
  Sender: FDA-Public Use
  Company Number: NVSC2021US123433

PATIENT
  Sex: Female

DRUGS (2)
  1. COSENTYX [Suspect]
     Active Substance: SECUKINUMAB
     Indication: PSORIATIC ARTHROPATHY
     Dosage: UNK UNK, QMO
     Route: 058
  2. COSENTYX [Suspect]
     Active Substance: SECUKINUMAB
     Indication: PSORIASIS

REACTIONS (7)
  - Contusion [Unknown]
  - Hot flush [Unknown]
  - Abdominal pain upper [Unknown]
  - Abdominal distension [Unknown]
  - Irritable bowel syndrome [Unknown]
  - Flushing [Unknown]
  - Gastrointestinal pain [Unknown]
